FAERS Safety Report 23227414 (Version 1)
Quarter: 2023Q4

REPORT INFORMATION
  Report Type: Spontaneous
  Country: US (occurrence: US)
  Receive Date: 20231124
  Receipt Date: 20231124
  Transmission Date: 20240110
  Serious: Yes (Hospitalization, Other)
  Sender: FDA-Public Use
  Company Number: US-IMMUNOGEN, INC.-US-IMGN-23-00665

PATIENT

DRUGS (1)
  1. ELAHERE [Suspect]
     Active Substance: MIRVETUXIMAB SORAVTANSINE-GYNX
     Indication: Product used for unknown indication
     Dosage: UNK, CYCLIC
     Route: 065

REACTIONS (6)
  - Atrial fibrillation [Unknown]
  - Pneumonitis [Unknown]
  - Fall [Unknown]
  - Bone contusion [Unknown]
  - Dizziness [Unknown]
  - Asthenia [Unknown]
